FAERS Safety Report 6076387-3 (Version None)
Quarter: 2009Q1

REPORT INFORMATION
  Report Type: 
  Country: None (occurrence: None)
  Receive Date: 20090210
  Receipt Date: 20090126
  Transmission Date: 20090719
  Serious: Yes (Disabling)
  Sender: FDA-Public Use
  Company Number: 2009S1001433

PATIENT
  Age: 30 Year
  Sex: Male

DRUGS (2)
  1. PHENOBARBITAL TAB [Suspect]
     Indication: EPILEPSY
     Dosage: 200 MG;DAILY
  2. PHENYTOIN [Suspect]
     Indication: EPILEPSY
     Dosage: 250 MG;DAILY

REACTIONS (1)
  - FIBROMATOSIS [None]
